FAERS Safety Report 15832696 (Version 1)
Quarter: 2019Q1

REPORT INFORMATION
  Report Type: Spontaneous
  Country: IT (occurrence: IT)
  Receive Date: 20190116
  Receipt Date: 20190116
  Transmission Date: 20190417
  Serious: Yes (Other)
  Sender: FDA-Public Use
  Company Number: IT-SA-2019SA010003

PATIENT
  Age: 66 Year
  Sex: Female

DRUGS (14)
  1. VECTIBIX [Suspect]
     Active Substance: PANITUMUMAB
     Indication: METASTASES TO LIVER
     Dosage: 400 MG, QCY
     Route: 042
     Dates: start: 20180809, end: 20180809
  2. LUCEN [ESOMEPRAZOLE MAGNESIUM] [Concomitant]
  3. FLUOROURACIL. [Suspect]
     Active Substance: FLUOROURACIL
     Dosage: 3500 MG, QCY
     Route: 040
     Dates: start: 20181129, end: 20181129
  4. FLUOROURACIL. [Suspect]
     Active Substance: FLUOROURACIL
     Dosage: 3000 MG, QCY
     Route: 040
  5. DOXIFLURIDINE [Suspect]
     Active Substance: DOXIFLURIDINE
     Dosage: 650 MG, QCY
     Route: 042
     Dates: start: 20181129, end: 20181129
  6. FLUOROURACIL. [Suspect]
     Active Substance: FLUOROURACIL
     Indication: METASTASES TO LIVER
     Dosage: 3500 MG, QCY
     Route: 040
     Dates: start: 20180809, end: 20180809
  7. DOXIFLURIDINE [Suspect]
     Active Substance: DOXIFLURIDINE
     Dosage: 600 MG, QCY
     Route: 042
  8. TIROSINT [Concomitant]
     Active Substance: LEVOTHYROXINE SODIUM
  9. OXALIPLATIN. [Suspect]
     Active Substance: OXALIPLATIN
     Dosage: 200 MG, QCY
     Route: 042
     Dates: start: 20181129, end: 20181129
  10. OXALIPLATIN. [Suspect]
     Active Substance: OXALIPLATIN
     Dosage: 150 MG, QCY
     Route: 042
  11. OXALIPLATIN. [Suspect]
     Active Substance: OXALIPLATIN
     Indication: METASTASES TO LIVER
     Dosage: 200 MG, QCY
     Route: 042
     Dates: start: 20180809, end: 20180809
  12. DOXIFLURIDINE [Suspect]
     Active Substance: DOXIFLURIDINE
     Indication: METASTASES TO LIVER
     Dosage: 650 MG, QCY
     Route: 042
     Dates: start: 20180809, end: 20180809
  13. VECTIBIX [Suspect]
     Active Substance: PANITUMUMAB
     Dosage: 400 MG, QCY
     Route: 042
     Dates: start: 20181129, end: 20181129
  14. VECTIBIX [Suspect]
     Active Substance: PANITUMUMAB
     Dosage: 300 MG, QCY
     Route: 042

REACTIONS (7)
  - Skin fissures [Recovering/Resolving]
  - Flushing [Recovering/Resolving]
  - Palmar-plantar erythrodysaesthesia syndrome [Recovering/Resolving]
  - Neuropathy peripheral [Recovering/Resolving]
  - Oedema [Recovering/Resolving]
  - Dry skin [Recovering/Resolving]
  - Eye irritation [Recovering/Resolving]

NARRATIVE: CASE EVENT DATE: 20181213
